FAERS Safety Report 20800377 (Version 1)
Quarter: 2022Q2

REPORT INFORMATION
  Report Type: Report from Study
  Country: CZ (occurrence: CZ)
  Receive Date: 20220509
  Receipt Date: 20220509
  Transmission Date: 20220721
  Serious: Yes (Hospitalization)
  Sender: FDA-Public Use
  Company Number: CZ-SAMSUNG BIOEPIS-SB-2022-10777

PATIENT
  Age: 21 Year
  Sex: Male

DRUGS (1)
  1. INFLIXIMAB [Suspect]
     Active Substance: INFLIXIMAB
     Indication: Crohn^s disease
     Dosage: UNKNOWN
     Route: 065

REACTIONS (4)
  - Ileostomy [Recovered/Resolved]
  - Secretion discharge [Recovered/Resolved]
  - Purulent discharge [Recovered/Resolved]
  - Proctocolectomy [Recovered/Resolved]

NARRATIVE: CASE EVENT DATE: 20220406
